FAERS Safety Report 16481949 (Version 1)
Quarter: 2019Q2

REPORT INFORMATION
  Report Type: Spontaneous
  Country: FR (occurrence: FR)
  Receive Date: 20190627
  Receipt Date: 20190627
  Transmission Date: 20190711
  Serious: Yes (Hospitalization)
  Sender: FDA-Public Use
  Company Number: FR-ACCORD-135255

PATIENT
  Age: 69 Year
  Sex: Male
  Weight: 82.5 kg

DRUGS (10)
  1. IRBESARTAN. [Concomitant]
     Active Substance: IRBESARTAN
  2. MOVICOL [Concomitant]
     Active Substance: POLYETHYLENE GLYCOL 3350\POTASSIUM CHLORIDE\SODIUM BICARBONATE\SODIUM CHLORIDE
  3. XATRAL [Suspect]
     Active Substance: ALFUZOSIN
     Indication: BENIGN PROSTATIC HYPERPLASIA
     Route: 048
     Dates: start: 20190418, end: 20190521
  4. DITROPAN [Suspect]
     Active Substance: OXYBUTYNIN CHLORIDE
     Indication: URINARY RETENTION
     Dosage: STRENGTH-5 MG, SCORED TABLET
     Route: 048
     Dates: start: 20190515, end: 20190521
  5. INNOHEP [Concomitant]
     Active Substance: TINZAPARIN SODIUM
  6. DIFFU K [Concomitant]
     Active Substance: POTASSIUM CHLORIDE
  7. FINASTERIDE ACCORD [Suspect]
     Active Substance: FINASTERIDE
     Indication: BENIGN PROSTATIC HYPERPLASIA
     Dosage: STRENGTH-5 MG
     Route: 048
     Dates: start: 20190418, end: 20190521
  8. PANTOPRAZOLE [Concomitant]
     Active Substance: PANTOPRAZOLE
  9. CEFOTAXIME [Suspect]
     Active Substance: CEFOTAXIME SODIUM
     Indication: BRAIN ABSCESS
     Route: 042
     Dates: start: 20190417, end: 20190521
  10. FUNGIZONE [Concomitant]
     Active Substance: AMPHOTERICIN B

REACTIONS (1)
  - Agranulocytosis [Recovered/Resolved]

NARRATIVE: CASE EVENT DATE: 20190521
